FAERS Safety Report 6434896-9 (Version None)
Quarter: 2009Q4

REPORT INFORMATION
  Report Type: 
  Country: None (occurrence: None)
  Receive Date: 20091110
  Receipt Date: 20091106
  Transmission Date: 20100525
  Serious: Yes (Death, Hospitalization)
  Sender: FDA-Public Use
  Company Number: JP-BRISTOL-MYERS SQUIBB COMPANY-14585079

PATIENT
  Age: 58 Year
  Sex: Male

DRUGS (10)
  1. SPRYCEL [Suspect]
     Indication: CHRONIC MYELOID LEUKAEMIA
     Route: 048
     Dates: start: 20090221, end: 20090321
  2. FUNGUARD [Concomitant]
     Route: 042
     Dates: start: 20090226
  3. VANCOMYCIN [Concomitant]
     Route: 042
     Dates: end: 20090227
  4. MEROPEN [Concomitant]
     Route: 042
     Dates: end: 20090227
  5. ITRIZOLE [Concomitant]
     Route: 048
     Dates: end: 20090225
  6. CIPROXAN [Concomitant]
     Route: 042
     Dates: start: 20090228, end: 20090305
  7. TARGOCID [Concomitant]
     Route: 042
     Dates: start: 20090228, end: 20090318
  8. NOVANTRONE [Concomitant]
     Route: 042
     Dates: start: 20090313, end: 20090313
  9. TIENAM [Concomitant]
     Route: 042
     Dates: start: 20090306, end: 20090318
  10. MODACIN [Concomitant]
     Route: 042
     Dates: start: 20090319

REACTIONS (2)
  - MALIGNANT NEOPLASM PROGRESSION [None]
  - PLATELET COUNT DECREASED [None]
